FAERS Safety Report 18121992 (Version 1)
Quarter: 2020Q3

REPORT INFORMATION
  Report Type: Other
  Country: MX (occurrence: MX)
  Receive Date: 20200806
  Receipt Date: 20200806
  Transmission Date: 20201103
  Serious: Yes (Hospitalization, Disabling, Other)
  Sender: FDA-Public Use
  Company Number: MX-ROCHE-2653328

PATIENT
  Age: 38 Year
  Sex: Female

DRUGS (15)
  1. DOXORUBICIN [Concomitant]
     Active Substance: DOXORUBICIN
     Indication: B-CELL LYMPHOMA
     Dosage: DOSE WAS NOT REPORTED
     Route: 042
     Dates: start: 201804, end: 201911
  2. ONDANSETRON [Concomitant]
     Active Substance: ONDANSETRON
     Indication: PREMEDICATION
     Dosage: DOSE WAS NOT REPORTED
     Dates: start: 201804, end: 201911
  3. METFORMIN [Concomitant]
     Active Substance: METFORMIN HYDROCHLORIDE
     Indication: PRODUCT USED FOR UNKNOWN INDICATION
     Dosage: DOSE WAS NOT REPORTED
  4. INSULIN [Concomitant]
     Active Substance: INSULIN NOS
     Dosage: 3 UNITS
     Dates: start: 20200101
  5. DACARBAZINE. [Concomitant]
     Active Substance: DACARBAZINE
     Indication: HODGKIN^S DISEASE
  6. VINCRISTINE [Concomitant]
     Active Substance: VINCRISTINE
     Indication: B-CELL LYMPHOMA
     Dosage: DOSE WAS NOT REPORTED
     Route: 042
     Dates: start: 201804, end: 201911
  7. BLEOMYCIN [Concomitant]
     Active Substance: BLEOMYCIN SULFATE
     Indication: HODGKIN^S DISEASE
  8. CYCLOPHOSPHAMIDE. [Concomitant]
     Active Substance: CYCLOPHOSPHAMIDE
     Indication: B-CELL LYMPHOMA
     Dosage: DOSE WAS NOT REPORTED
     Route: 042
     Dates: start: 201804, end: 201911
  9. METOCLOPRAMIDE. [Concomitant]
     Active Substance: METOCLOPRAMIDE
     Indication: PREMEDICATION
     Dosage: DOSE WAS NOT REPORTED
     Dates: start: 201804, end: 201911
  10. DEXAMETHASONE. [Concomitant]
     Active Substance: DEXAMETHASONE
     Indication: PREMEDICATION
     Dosage: DOSE WAS NOT REPORTED
     Dates: start: 201804, end: 201911
  11. DIPHENHYDRAMINE. [Concomitant]
     Active Substance: DIPHENHYDRAMINE
     Indication: PREMEDICATION
     Dosage: DOSE WAS NOT REPORTED
     Dates: start: 201804, end: 201911
  12. FILGRASTIM [Concomitant]
     Active Substance: FILGRASTIM
     Dosage: DOSE WAS NOT REPORTED
     Route: 048
  13. RITUXIMAB. [Suspect]
     Active Substance: RITUXIMAB
     Indication: B-CELL LYMPHOMA
     Dosage: DOSE WAS NOT REPORTED
     Route: 042
     Dates: start: 201804, end: 201911
  14. DEXRAZOXANE. [Concomitant]
     Active Substance: DEXRAZOXANE
     Indication: B-CELL LYMPHOMA
     Dosage: DOSE WAS NOT REPORTED
     Route: 042
     Dates: start: 201804, end: 201911
  15. RANITIDINE. [Concomitant]
     Active Substance: RANITIDINE
     Indication: PREMEDICATION
     Dosage: DOSE WAS NOT REPORTED
     Dates: start: 201804, end: 201911

REACTIONS (11)
  - Blood glucose increased [Recovered/Resolved]
  - Arrhythmia [Unknown]
  - Skin discolouration [Unknown]
  - Vomiting [Unknown]
  - Areflexia [Recovering/Resolving]
  - Cholelithiasis [Unknown]
  - Dyspnoea [Recovered/Resolved]
  - Gait disturbance [Unknown]
  - Decreased appetite [Unknown]
  - Dehydration [Recovered/Resolved]
  - Lip discolouration [Unknown]
